FAERS Safety Report 4982127-9 (Version None)
Quarter: 2006Q2

REPORT INFORMATION
  Report Type: 
  Country: None (occurrence: None)
  Receive Date: 20060425
  Receipt Date: 20051109
  Transmission Date: 20061013
  Serious: Yes (Hospitalization, Disabling)
  Sender: FDA-Public Use
  Company Number: US-MERCK-0511USA01879

PATIENT
  Age: 55 Year
  Sex: Female

DRUGS (2)
  1. VIOXX [Suspect]
     Indication: BACK PAIN
     Route: 048
     Dates: start: 20001215, end: 20001219
  2. VIOXX [Suspect]
     Route: 048
     Dates: start: 20001220, end: 20021222

REACTIONS (17)
  - ANXIETY DISORDER [None]
  - BLOOD GLUCOSE INCREASED [None]
  - BREAST CYST [None]
  - CEREBROVASCULAR ACCIDENT [None]
  - CONGESTIVE CARDIOMYOPATHY [None]
  - CORONARY ARTERY DISEASE [None]
  - ENTEROCOLITIS HAEMORRHAGIC [None]
  - FIBROMYALGIA [None]
  - GASTROOESOPHAGEAL REFLUX DISEASE [None]
  - HYPERTENSION [None]
  - LARGE INTESTINAL ULCER [None]
  - MAJOR DEPRESSION [None]
  - MITRAL VALVE INCOMPETENCE [None]
  - MULTIPLE DRUG OVERDOSE [None]
  - PAIN [None]
  - PERIARTHRITIS [None]
  - VULVOVAGINAL MYCOTIC INFECTION [None]
